FAERS Safety Report 7622601-X (Version None)
Quarter: 2011Q3

REPORT INFORMATION
  Report Type: 
  Country: None (occurrence: None)
  Receive Date: 20110719
  Receipt Date: 20110719
  Transmission Date: 20111222
  Serious: Yes (Life-Threatening, Hospitalization, Other)
  Sender: FDA-Public Use
  Company Number: None

PATIENT
  Sex: Female
  Weight: 64.8 kg

DRUGS (2)
  1. LUPRON DEPOT-PED [Suspect]
     Indication: PRECOCIOUS PUBERTY
     Dosage: 1-15MG INJECTION EVERY 28 DAYS IM
     Route: 030
     Dates: start: 20050810, end: 20080514
  2. CRYSELLE [Concomitant]

REACTIONS (1)
  - GLIOMA [None]
